FAERS Safety Report 4424716-6 (Version None)
Quarter: 2004Q3

REPORT INFORMATION
  Report Type: 
  Country: None (occurrence: None)
  Receive Date: 20040805
  Receipt Date: 20040722
  Transmission Date: 20050211
  Serious: Yes (Other)
  Sender: FDA-Public Use
  Company Number: 2004-DE-04061GD

PATIENT
  Age: 55 Year
  Sex: Male

DRUGS (2)
  1. MEXILETINE HCL [Suspect]
     Indication: ARRHYTHMIA PROPHYLAXIS
     Dosage: 450 MG  PO
     Route: 048
  2. CIBENZOLINE (CIBENZOLINE) [Suspect]
     Indication: ARRHYTHMIA PROPHYLAXIS
     Dosage: 150 MG , PO
     Route: 048

REACTIONS (2)
  - SUPRAVENTRICULAR TACHYCARDIA [None]
  - VENTRICULAR TACHYCARDIA [None]
